FAERS Safety Report 7480373-6 (Version None)
Quarter: 2011Q2

REPORT INFORMATION
  Report Type: 
  Country: None (occurrence: None)
  Receive Date: 20110504
  Receipt Date: 20110425
  Transmission Date: 20111010
  Serious: Yes (Other)
  Sender: FDA-Public Use
  Company Number: 2011P1005969

PATIENT
  Age: 51 Year
  Sex: Male
  Weight: 77.1115 kg

DRUGS (7)
  1. FENTANYL [Suspect]
     Indication: PAIN MANAGEMENT
     Dosage: 1 PATCH; TDER
     Route: 062
  2. FENTANYL [Suspect]
     Indication: PAIN MANAGEMENT
     Dosage: 1 PATCH; TDER
     Route: 062
  3. LIDODERM [Concomitant]
  4. FENTANYL [Suspect]
     Indication: PAIN MANAGEMENT
     Dosage: 1 PATCH; TDER; 1 PATCH;Q72H;TDER; 1 PATCH;Q48H;TDER
     Route: 062
     Dates: start: 20110401, end: 20110401
  5. FENTANYL [Suspect]
     Indication: PAIN MANAGEMENT
     Dosage: 1 PATCH; TDER; 1 PATCH;Q72H;TDER; 1 PATCH;Q48H;TDER
     Route: 062
  6. FENTANYL [Suspect]
     Indication: PAIN MANAGEMENT
     Dosage: 1 PATCH; TDER; 1 PATCH;Q72H;TDER; 1 PATCH;Q48H;TDER
     Route: 062
     Dates: start: 20110401
  7. MELOCICAM [Concomitant]

REACTIONS (9)
  - RIB FRACTURE [None]
  - APPLICATION SITE REACTION [None]
  - FALL [None]
  - INADEQUATE ANALGESIA [None]
  - BLOOD ALKALINE PHOSPHATASE INCREASED [None]
  - DEPRESSED MOOD [None]
  - OSTEOPOROSIS [None]
  - GAIT DISTURBANCE [None]
  - SKIN WRINKLING [None]
